FAERS Safety Report 9939253 (Version 1)
Quarter: 2014Q1

REPORT INFORMATION
  Report Type: Report from Study
  Country: US (occurrence: US)
  Receive Date: 20140303
  Receipt Date: 20140303
  Transmission Date: 20141002
  Serious: No
  Sender: FDA-Public Use
  Company Number: US-ABBVIE-13P-163-1032150-00

PATIENT
  Age: 60 Year
  Sex: Male
  Weight: 95.34 kg

DRUGS (15)
  1. HUMIRA [Suspect]
     Indication: RHEUMATOID ARTHRITIS
     Dates: start: 20121220
  2. AMLODIPINE BESYLATE [Concomitant]
     Indication: HYPERTENSION
  3. ISOSORBIDE MONONITRATE [Concomitant]
     Indication: CARDIAC DISORDER
  4. LISINOPRIL-HCTZ [Concomitant]
     Indication: HYPERTENSION
  5. SIMVASTATIN [Concomitant]
     Indication: BLOOD CHOLESTEROL INCREASED
  6. ASPIRIN [Concomitant]
     Indication: CARDIAC DISORDER
  7. UROXATRAL [Concomitant]
     Indication: BLADDER DISORDER
  8. CYMBALTA [Concomitant]
     Indication: ANXIETY
  9. CYMBALTA [Concomitant]
     Indication: PAIN
  10. CYMBALTA [Concomitant]
     Indication: DEPRESSION
  11. NEXIUM [Concomitant]
     Indication: GASTROOESOPHAGEAL REFLUX DISEASE
  12. ANDROGEL [Concomitant]
     Indication: BLOOD TESTOSTERONE DECREASED
  13. PREDNISONE [Concomitant]
     Indication: RHEUMATOID ARTHRITIS
  14. SULFASALAZINE [Concomitant]
     Indication: RHEUMATOID ARTHRITIS
  15. HYDROXYCHLOROQUINE [Concomitant]
     Indication: RHEUMATOID ARTHRITIS

REACTIONS (2)
  - Drug administered at inappropriate site [Not Recovered/Not Resolved]
  - Injection site haemorrhage [Recovered/Resolved]
